FAERS Safety Report 17863737 (Version 1)
Quarter: 2020Q2

REPORT INFORMATION
  Report Type: Report from Study
  Country: None (occurrence: PH)
  Receive Date: 20200605
  Receipt Date: 20200605
  Transmission Date: 20200714
  Serious: Yes (Death)
  Sender: FDA-Public Use
  Company Number: PH-ABBVIE-20K-128-3431376-00

PATIENT
  Age: 88 Year

DRUGS (1)
  1. IBRUTINIB [Suspect]
     Active Substance: IBRUTINIB
     Indication: CHRONIC LYMPHOCYTIC LEUKAEMIA
     Route: 048
     Dates: start: 201910

REACTIONS (1)
  - Death [Fatal]

NARRATIVE: CASE EVENT DATE: 20200530
